FAERS Safety Report 6822536-6 (Version None)
Quarter: 2010Q3

REPORT INFORMATION
  Report Type: 
  Country: None (occurrence: None)
  Receive Date: 20100708
  Receipt Date: 20100607
  Transmission Date: 20110219
  Serious: No
  Sender: FDA-Public Use
  Company Number: US-BAYER-201022040NA

PATIENT
  Age: 48 Year
  Sex: Female
  Weight: 111 kg

DRUGS (12)
  1. ULTRAVIST 300 [Suspect]
     Indication: COMPUTERISED TOMOGRAM THORAX
     Dosage: TOTAL DAILY DOSE: 150 ML  UNIT DOSE: 300 ML
     Route: 042
     Dates: start: 20100607, end: 20100607
  2. ULTRAVIST 300 [Suspect]
     Dosage: TOTAL DAILY DOSE: 150 ML
     Route: 042
     Dates: start: 20100422, end: 20100422
  3. BENADRYL [Concomitant]
     Dosage: TOTAL DAILY DOSE: 50 MG
     Route: 048
     Dates: start: 20100607, end: 20100607
  4. BENADRYL [Concomitant]
  5. READI-CAT [Concomitant]
     Route: 048
     Dates: start: 20100422, end: 20100422
  6. PREDNISONE [Concomitant]
     Dosage: DOSE: 12 HRS BEFORE SCAN
     Route: 048
  7. HUMALOG [Concomitant]
  8. EFFEXOR [Concomitant]
  9. LANTUS [Concomitant]
  10. SYNTHROID [Concomitant]
  11. LIPITOR [Concomitant]
  12. DIOVAN [Concomitant]

REACTIONS (5)
  - COUGH [None]
  - EAR PRURITUS [None]
  - NASAL CONGESTION [None]
  - PRURITUS [None]
  - THROAT IRRITATION [None]
